FAERS Safety Report 5206957-3 (Version None)
Quarter: 2007Q1

REPORT INFORMATION
  Report Type: 
  Country: None (occurrence: None)
  Receive Date: 20070108
  Receipt Date: 20070108
  Transmission Date: 20070707
  Serious: Yes (Hospitalization)
  Sender: FDA-Public Use
  Company Number: None

PATIENT
  Sex: Female
  Weight: 58.6 kg

DRUGS (2)
  1. CARBOPLATIN [Suspect]
     Dosage: 830 MG
  2. ALIMTA [Suspect]
     Dosage: 300 MG

REACTIONS (4)
  - FAILURE TO THRIVE [None]
  - HAEMATOTOXICITY [None]
  - PLATELET COUNT DECREASED [None]
  - STOMATITIS [None]
